FAERS Safety Report 10600786 (Version 1)
Quarter: 2014Q4

REPORT INFORMATION
  Report Type: Spontaneous
  Country: US (occurrence: US)
  Receive Date: 20141124
  Receipt Date: 20141124
  Transmission Date: 20150529
  Serious: Yes (Other)
  Sender: FDA-Public Use
  Company Number: US-AMGEN-USASP2014089854

PATIENT
  Age: 30 Year
  Sex: Male

DRUGS (1)
  1. ENBREL [Suspect]
     Active Substance: ETANERCEPT
     Indication: PSORIATIC ARTHROPATHY
     Dosage: 50 MG, QWK
     Route: 065
     Dates: start: 2007

REACTIONS (4)
  - Limb injury [Recovering/Resolving]
  - Sensory loss [Not Recovered/Not Resolved]
  - Laceration [Recovered/Resolved]
  - Accident at work [Recovering/Resolving]

NARRATIVE: CASE EVENT DATE: 201410
